FAERS Safety Report 6071215-4 (Version None)
Quarter: 2009Q1

REPORT INFORMATION
  Report Type: 
  Country: None (occurrence: None)
  Receive Date: 20090209
  Receipt Date: 20090130
  Transmission Date: 20090719
  Serious: Yes (Hospitalization)
  Sender: FDA-Public Use
  Company Number: US-CELGENEUS-163-21880-08101669

PATIENT
  Sex: Male

DRUGS (14)
  1. REVLIMID [Suspect]
     Indication: MULTIPLE MYELOMA
     Route: 048
     Dates: start: 20080430, end: 20081013
  2. RITUXIMAB [Suspect]
     Indication: MULTIPLE MYELOMA
     Route: 065
     Dates: start: 20080430
  3. RITUXIMAB [Suspect]
  4. VITAMIN B [Concomitant]
     Indication: DRUG USE FOR UNKNOWN INDICATION
     Route: 048
  5. ASCORBIC ACID [Concomitant]
     Indication: DRUG USE FOR UNKNOWN INDICATION
     Route: 048
  6. COUMADIN [Concomitant]
     Indication: DRUG USE FOR UNKNOWN INDICATION
     Route: 048
  7. COUMADIN [Concomitant]
     Route: 065
  8. GERICARE [Concomitant]
     Indication: DRUG USE FOR UNKNOWN INDICATION
     Route: 048
  9. COLACE [Concomitant]
     Indication: DRUG USE FOR UNKNOWN INDICATION
     Route: 048
  10. SENNA [Concomitant]
     Indication: DRUG USE FOR UNKNOWN INDICATION
     Route: 048
  11. VITACOM [Concomitant]
     Indication: DRUG USE FOR UNKNOWN INDICATION
     Route: 048
  12. VERAPAMIL [Concomitant]
     Indication: DRUG USE FOR UNKNOWN INDICATION
     Route: 048
  13. PRILOSEC [Concomitant]
     Indication: DRUG USE FOR UNKNOWN INDICATION
     Route: 048
  14. PAMIDRONATE DISODIUM [Concomitant]
     Indication: DRUG USE FOR UNKNOWN INDICATION
     Route: 051

REACTIONS (3)
  - BONE MARROW FAILURE [None]
  - INTERNATIONAL NORMALISED RATIO INCREASED [None]
  - PNEUMONIA [None]
